FAERS Safety Report 22216271 (Version 1)
Quarter: 2023Q2

REPORT INFORMATION
  Report Type: Spontaneous
  Country: US (occurrence: US)
  Receive Date: 20230417
  Receipt Date: 20230417
  Transmission Date: 20230721
  Serious: No
  Sender: FDA-Public Use
  Company Number: US-LEO Pharma-351237

PATIENT
  Age: 56 Year
  Sex: Female

DRUGS (3)
  1. ADBRY [Suspect]
     Active Substance: TRALOKINUMAB-LDRM
     Indication: Product used for unknown indication
     Dosage: DOSAGE : 150 MG SUBCUTANEOUSLY
     Route: 058
     Dates: start: 20220701
  2. ADBRY [Suspect]
     Active Substance: TRALOKINUMAB-LDRM
     Indication: Product used for unknown indication
     Dosage: DOSAGE : 150 MG SUBCUTANEOUSLY
     Route: 058
     Dates: start: 20220701
  3. ADBRY [Suspect]
     Active Substance: TRALOKINUMAB-LDRM
     Indication: Product used for unknown indication
     Dosage: DOSAGE : 150 MG SUBCUTANEOUSLY
     Route: 058
     Dates: start: 20220701

REACTIONS (5)
  - Oropharyngeal blistering [Unknown]
  - Oropharyngeal pain [Unknown]
  - Oral mucosal blistering [Unknown]
  - Oral pain [Unknown]
  - Incorrect dose administered [Recovered/Resolved]

NARRATIVE: CASE EVENT DATE: 20220701
